FAERS Safety Report 20280163 (Version 1)
Quarter: 2021Q4

REPORT INFORMATION
  Report Type: Spontaneous
  Country: US (occurrence: None)
  Receive Date: 20211231
  Receipt Date: 20211231
  Transmission Date: 20220303
  Serious: Yes (Life-Threatening, Hospitalization)
  Sender: FDA-Public Use
  Company Number: None

PATIENT
  Age: 57 Year
  Sex: Female

DRUGS (2)
  1. FLUOXETINE [Suspect]
     Active Substance: FLUOXETINE HYDROCHLORIDE
     Indication: Depression
     Route: 048
     Dates: start: 20210510, end: 20210630
  2. XANAX [Suspect]
     Active Substance: ALPRAZOLAM

REACTIONS (10)
  - Autoimmune disorder [None]
  - Rheumatoid arthritis [None]
  - Drug hypersensitivity [None]
  - Sneezing [None]
  - Pneumonitis [None]
  - Product complaint [None]
  - Rash [None]
  - Cough [None]
  - Cytokine storm [None]
  - Drug hypersensitivity [None]

NARRATIVE: CASE EVENT DATE: 20210805
